FAERS Safety Report 4441598-7 (Version None)
Quarter: 2004Q3

REPORT INFORMATION
  Report Type: 
  Country: None (occurrence: None)
  Receive Date: 20040907
  Receipt Date: 20040826
  Transmission Date: 20050211
  Serious: Yes (Hospitalization)
  Sender: FDA-Public Use
  Company Number: CH-BRISTOL-MYERS SQUIBB COMPANY-12684510

PATIENT
  Age: 40 Year
  Sex: Female
  Weight: 52 kg

DRUGS (2)
  1. AMIKIN [Suspect]
     Indication: ENDOCARDITIS
     Route: 042
     Dates: start: 20040526, end: 20040610
  2. ROCEPHIN [Suspect]
     Indication: ENDOCARDITIS
     Route: 042
     Dates: start: 20040531, end: 20040607

REACTIONS (1)
  - LEUKOPENIA [None]
